FAERS Safety Report 15390910 (Version 2)
Quarter: 2019Q1

REPORT INFORMATION
  Report Type: Spontaneous
  Country: US (occurrence: US)
  Receive Date: 20180917
  Receipt Date: 20190110
  Transmission Date: 20190417
  Serious: No
  Sender: FDA-Public Use
  Company Number: US-SA-2018SA256903

PATIENT
  Sex: Male

DRUGS (2)
  1. PRALUENT [Suspect]
     Active Substance: ALIROCUMAB
     Dosage: 75 MG
     Route: 058
  2. ALIROCUMAB PREFILLED PEN [Suspect]
     Active Substance: ALIROCUMAB
     Dosage: 75 MG
     Route: 058

REACTIONS (5)
  - Haemoglobin decreased [Unknown]
  - Platelet count decreased [Unknown]
  - Unevaluable event [Unknown]
  - Low density lipoprotein decreased [Unknown]
  - Influenza like illness [Unknown]
